FAERS Safety Report 8386355-4 (Version None)
Quarter: 2012Q2

REPORT INFORMATION
  Report Type: 
  Country: None (occurrence: None)
  Receive Date: 20120525
  Receipt Date: 20120515
  Transmission Date: 20120825
  Serious: Yes (Hospitalization)
  Sender: FDA-Public Use
  Company Number: DE-JNJFOC-20120207999

PATIENT
  Sex: Male
  Weight: 71 kg

DRUGS (3)
  1. REMICADE [Suspect]
     Indication: CROHN'S DISEASE
     Route: 042
     Dates: start: 20090226
  2. REMICADE [Suspect]
     Route: 042
     Dates: start: 20070322
  3. ADALIMUMAB [Concomitant]
     Indication: CROHN'S DISEASE
     Dates: start: 20090406

REACTIONS (1)
  - THYROID NEOPLASM [None]
